FAERS Safety Report 5837483-6 (Version None)
Quarter: 2008Q3

REPORT INFORMATION
  Report Type: 
  Country: None (occurrence: None)
  Receive Date: 20080807
  Receipt Date: 20080725
  Transmission Date: 20090109
  Serious: Yes (Hospitalization)
  Sender: FDA-Public Use
  Company Number: FR-ELI_LILLY_AND_COMPANY-FR200807005137

PATIENT
  Sex: Male

DRUGS (2)
  1. PROZAC [Suspect]
     Indication: DEPRESSION
     Route: 048
     Dates: start: 20080101, end: 20080201
  2. STILNOX [Concomitant]
     Indication: DEPRESSION
     Dates: start: 20080101

REACTIONS (3)
  - ANAEMIA MACROCYTIC [None]
  - CHOLESTASIS [None]
  - GENERAL PHYSICAL HEALTH DETERIORATION [None]
